FAERS Safety Report 15445770 (Version 4)
Quarter: 2019Q1

REPORT INFORMATION
  Report Type: Spontaneous
  Country: GB (occurrence: GB)
  Receive Date: 20180928
  Receipt Date: 20190201
  Transmission Date: 20190417
  Serious: Yes (Other)
  Sender: FDA-Public Use
  Company Number: GB-REGENERON PHARMACEUTICALS, INC.-2018-38956

PATIENT

DRUGS (8)
  1. EYLEA [Suspect]
     Active Substance: AFLIBERCEPT
     Dosage: 1 DF, ONCE, LEFT EYE, LAST INJECTION PRIOR TO EVENT
     Route: 031
     Dates: start: 20180309, end: 20180309
  2. LUTEIN-ZEAXANTHIN [Concomitant]
     Indication: PRODUCT USED FOR UNKNOWN INDICATION
     Dosage: 30/10/6
     Dates: start: 201408
  3. EYLEA [Suspect]
     Active Substance: AFLIBERCEPT
     Indication: NEOVASCULAR AGE-RELATED MACULAR DEGENERATION
     Dosage: SINCE JAN-2014 HAVE INJECTIONS ON BOTH EYES, HAVE HAD ABOUT 50 INJECTIONS
     Dates: start: 20140202
  4. ISOSORBIDE MONONITRATE. [Concomitant]
     Active Substance: ISOSORBIDE MONONITRATE
     Indication: PRODUCT USED FOR UNKNOWN INDICATION
     Dosage: 10 MG
     Dates: start: 20150701
  5. HYLO-FORTE [Concomitant]
     Active Substance: HYALURONATE SODIUM
     Indication: PRODUCT USED FOR UNKNOWN INDICATION
     Dosage: 1 GTT, QID, BOTH EYES
  6. LOPIDINE [Concomitant]
     Indication: INTRAOCULAR PRESSURE DECREASED
     Dosage: PRIOR TO INJECTION
  7. BISOPROLOL [Concomitant]
     Active Substance: BISOPROLOL
     Indication: PRODUCT USED FOR UNKNOWN INDICATION
     Dosage: 2.5 MG
     Dates: start: 20150701
  8. CARMELLOSE [Concomitant]
     Indication: PRODUCT USED FOR UNKNOWN INDICATION
     Dosage: 1 GTT, QID, BOTH EYES

REACTIONS (6)
  - Cataract [Unknown]
  - Blindness transient [Recovered/Resolved]
  - Angle closure glaucoma [Unknown]
  - Eye oedema [Recovered/Resolved]
  - Retinal pigment epitheliopathy [Unknown]
  - Intraocular pressure increased [Not Recovered/Not Resolved]

NARRATIVE: CASE EVENT DATE: 20180309
